FAERS Safety Report 14751947 (Version 1)
Quarter: 2018Q2

REPORT INFORMATION
  Report Type: Spontaneous
  Country: US (occurrence: US)
  Receive Date: 20180406
  Receipt Date: 20180406
  Transmission Date: 20180711
  Serious: Yes (Hospitalization)
  Sender: FDA-Public Use
  Company Number: None

PATIENT
  Age: 84 Year
  Sex: Female
  Weight: 80 kg

DRUGS (13)
  1. OMEPRAZOLE (20 MG DAILY) [Concomitant]
     Dates: start: 20170707
  2. GABAPENTIN. [Concomitant]
     Active Substance: GABAPENTIN
     Dates: start: 20170707
  3. TRULICITY [Suspect]
     Active Substance: DULAGLUTIDE
     Indication: TYPE 2 DIABETES MELLITUS
     Route: 058
     Dates: start: 20171016, end: 20180228
  4. MELATONIN [Concomitant]
     Active Substance: MELATONIN
     Dates: start: 20170707
  5. TRAMADOL. [Concomitant]
     Active Substance: TRAMADOL
     Dates: start: 20170707
  6. ACETAMINOPHEN. [Concomitant]
     Active Substance: ACETAMINOPHEN
     Dates: start: 20170707
  7. CALCIUM CITRATE [Concomitant]
     Active Substance: CALCIUM CITRATE
     Dates: start: 20170707
  8. FEXOFENADINE [Concomitant]
     Active Substance: FEXOFENADINE\FEXOFENADINE HYDROCHLORIDE
     Dates: start: 20170707
  9. SIMVASTATIN. [Concomitant]
     Active Substance: SIMVASTATIN
     Dates: start: 20170707
  10. MIRALAX [Concomitant]
     Active Substance: POLYETHYLENE GLYCOL 3350
     Dates: start: 20170707
  11. SERTRALINE [Concomitant]
     Active Substance: SERTRALINE HYDROCHLORIDE
     Dates: start: 20170707
  12. XARELTO [Concomitant]
     Active Substance: RIVAROXABAN
     Dates: start: 20170707
  13. METFORMIN [Concomitant]
     Active Substance: METFORMIN HYDROCHLORIDE
     Dates: start: 20170707

REACTIONS (4)
  - Mallory-Weiss syndrome [None]
  - Gastrooesophageal reflux disease [None]
  - Haemorrhage [None]
  - Chest pain [None]

NARRATIVE: CASE EVENT DATE: 20180228
